FAERS Safety Report 16056086 (Version 1)
Quarter: 2019Q1

REPORT INFORMATION
  Report Type: Report from Study
  Country: CO (occurrence: CO)
  Receive Date: 20190311
  Receipt Date: 20190311
  Transmission Date: 20190418
  Serious: Yes (Hospitalization)
  Sender: FDA-Public Use
  Company Number: CO-ASTELLAS-2019US009483

PATIENT
  Sex: Female
  Weight: 35 kg

DRUGS (1)
  1. TACROLIMUS. [Suspect]
     Active Substance: TACROLIMUS
     Indication: RENAL TRANSPLANT
     Dosage: 7 MG, ONCE DAILY (1 CAPSULE OF 5 MG AND 2 CAPSULES OF 1 MG)
     Route: 048
     Dates: start: 20160412

REACTIONS (3)
  - Respiratory disorder [Recovering/Resolving]
  - Diarrhoea [Recovering/Resolving]
  - Chills [Recovering/Resolving]
